FAERS Safety Report 24009596 (Version 2)
Quarter: 2024Q3

REPORT INFORMATION
  Report Type: Spontaneous
  Country: DE (occurrence: DE)
  Receive Date: 20240625
  Receipt Date: 20240720
  Transmission Date: 20241016
  Serious: Yes (Hospitalization, Other)
  Sender: AVERITAS
  Company Number: DE-GRUNENTHAL-2024-115442

PATIENT
  Sex: Female

DRUGS (1)
  1. QUTENZA [Suspect]
     Active Substance: CAPSAICIN
     Indication: Polyneuropathy
     Dosage: 1 DOSAGE FORM, ONCE
     Route: 003
     Dates: start: 20240111, end: 20240111

REACTIONS (3)
  - Application site burn [Not Recovered/Not Resolved]
  - Extremity necrosis [Not Recovered/Not Resolved]
  - Drug monitoring procedure not performed [Unknown]

NARRATIVE: CASE EVENT DATE: 20240111
